FAERS Safety Report 21217429 (Version 2)
Quarter: 2022Q4

REPORT INFORMATION
  Report Type: Spontaneous
  Country: PT (occurrence: PT)
  Receive Date: 20220816
  Receipt Date: 20221025
  Transmission Date: 20230113
  Serious: Yes (Hospitalization)
  Sender: FDA-Public Use
  Company Number: PT-MYLANLABS-2022M1082777

PATIENT
  Age: 23 Year
  Sex: Male

DRUGS (8)
  1. ESCITALOPRAM [Suspect]
     Active Substance: ESCITALOPRAM OXALATE
     Indication: Obsessive-compulsive symptom
     Dosage: 20 MILLIGRAM, QD
     Route: 048
     Dates: start: 202202
  2. ESCITALOPRAM [Suspect]
     Active Substance: ESCITALOPRAM OXALATE
     Dosage: TITRATION FROM 10MG TO 20MG, QD
     Route: 048
     Dates: start: 202202, end: 202203
  3. QUETIAPINE [Suspect]
     Active Substance: QUETIAPINE
     Indication: Obsessive-compulsive symptom
     Dosage: 100 MILLIGRAM, QD
     Route: 048
     Dates: start: 202202
  4. RISPERIDONE [Suspect]
     Active Substance: RISPERIDONE
     Indication: Product used for unknown indication
     Dosage: 2 MILLIGRAM, QD, STOPPED 7 DAYS AFTER BEGINNING OF THERAPY
     Route: 048
  5. RISPERIDONE [Suspect]
     Active Substance: RISPERIDONE
     Dosage: 3 MILLIGRAM, QD
     Route: 048
  6. PAROXETINE [Suspect]
     Active Substance: PAROXETINE
     Indication: Product used for unknown indication
     Dosage: 20 MILLIGRAM, QD, STOPPED 7 DAYS AFTER BEGINNING OF THERAPY
     Route: 048
  7. LORAZEPAM [Suspect]
     Active Substance: LORAZEPAM
     Indication: Product used for unknown indication
     Dosage: 4.5 MILLIGRAM (LORAZEPAM 1+1+0+2.5MG)
     Route: 065
  8. OLANZAPINE [Concomitant]
     Active Substance: OLANZAPINE
     Dosage: 1.5 MILLIGRAM, QD, START MAR-2022
     Route: 065

REACTIONS (4)
  - Aspartate aminotransferase increased [Recovered/Resolved]
  - Alanine aminotransferase increased [Recovered/Resolved]
  - Transaminases increased [Recovered/Resolved]
  - Drug ineffective [Unknown]

NARRATIVE: CASE EVENT DATE: 20220201
